FAERS Safety Report 7428620-0 (Version None)
Quarter: 2011Q2

REPORT INFORMATION
  Report Type: 
  Country: None (occurrence: None)
  Receive Date: 20110415
  Receipt Date: 20110415
  Transmission Date: 20111010
  Serious: Yes (Other)
  Sender: FDA-Public Use
  Company Number: None

PATIENT
  Age: 53 Year
  Sex: Male

DRUGS (4)
  1. RANITIDINE [Concomitant]
  2. REVLIMID [Suspect]
     Indication: MULTIPLE MYELOMA
     Dosage: REVLIMID 25MG DAILY ORALLY
     Route: 048
     Dates: start: 20100701, end: 20100801
  3. ONDANSETRON [Concomitant]
  4. ACYCLOVIR [Concomitant]

REACTIONS (1)
  - RASH GENERALISED [None]
